FAERS Safety Report 23585254 (Version 1)
Quarter: 2024Q1

REPORT INFORMATION
  Report Type: Spontaneous
  Country: US (occurrence: US)
  Receive Date: 20240301
  Receipt Date: 20240301
  Transmission Date: 20240409
  Serious: Yes (Other)
  Sender: FDA-Public Use
  Company Number: US-VIIV HEALTHCARE LIMITED-US2024024394

PATIENT

DRUGS (12)
  1. TIVICAY [Suspect]
     Active Substance: DOLUTEGRAVIR SODIUM
     Indication: HIV infection
     Dosage: 50 MG, QD
     Route: 048
  2. LAMIVUDINE [Suspect]
     Active Substance: LAMIVUDINE
     Indication: HIV infection
     Dosage: 1 DF, QD
     Route: 048
  3. ATOVAQUONE [Suspect]
     Active Substance: ATOVAQUONE
     Indication: Product used for unknown indication
     Dosage: 5 ML, QD 750 MG/5ML SUSPENSION
     Route: 048
  4. TENOFOVIR DISOPROXIL FUMARATE [Suspect]
     Active Substance: TENOFOVIR DISOPROXIL FUMARATE
     Indication: HIV infection
     Dosage: 1 DF, QD
  5. PROPRANOLOL HYDROCHLORIDE [Suspect]
     Active Substance: PROPRANOLOL HYDROCHLORIDE
     Indication: Product used for unknown indication
     Dosage: 1 DF, QD, 10 MG
     Route: 048
  6. SYMBICORT [Suspect]
     Active Substance: BUDESONIDE\FORMOTEROL FUMARATE DIHYDRATE
     Indication: Product used for unknown indication
     Dosage: UNK, 80-4.5 MCG/ACT AEROSOL INHALATION
     Route: 055
  7. ONDANSETRON HYDROCHLORIDE [Suspect]
     Active Substance: ONDANSETRON HYDROCHLORIDE
     Indication: Product used for unknown indication
     Dosage: 1 DF, QD, 4 MG
     Route: 048
  8. LACTULOSE [Suspect]
     Active Substance: LACTULOSE
     Indication: Product used for unknown indication
     Dosage: 30 ML, QD, 10GM/15ML SOLUTION
     Route: 048
  9. PREGABALIN [Suspect]
     Active Substance: PREGABALIN
     Indication: Product used for unknown indication
     Dosage: 1 DF, BID, 75MG
     Route: 048
  10. ALBUTEROL SULFATE [Suspect]
     Active Substance: ALBUTEROL SULFATE
     Indication: Product used for unknown indication
     Dosage: 1 PUFF(S), HFA108 (90 BASE) MCG/ACI, 1 PUFF EVERY 4 HR AS NEEDED
  11. VITAMIN D2 [Suspect]
     Active Substance: ERGOCALCIFEROL
     Indication: Product used for unknown indication
     Dosage: UNK
  12. AMMONIUM LACTATE [Suspect]
     Active Substance: AMMONIUM LACTATE
     Indication: Product used for unknown indication
     Dosage: UNK, BID LOTION APPLY TOPICALLY TO AFFECTED TWICE A DAY
     Route: 061

REACTIONS (10)
  - Syncope [Unknown]
  - Thrombocytopenia [Not Recovered/Not Resolved]
  - Neuropathy peripheral [Unknown]
  - Dyspnoea exertional [Unknown]
  - Fall [Unknown]
  - Aphthous ulcer [Unknown]
  - Contusion [Unknown]
  - Pain in extremity [Unknown]
  - Back pain [Unknown]
  - Joint dislocation [Unknown]
